FAERS Safety Report 5518123-2 (Version None)
Quarter: 2007Q4

REPORT INFORMATION
  Report Type: 
  Country: None (occurrence: None)
  Receive Date: 20071113
  Receipt Date: 20071113
  Transmission Date: 20080405
  Serious: Yes (Other)
  Sender: FDA-Public Use
  Company Number: None

PATIENT
  Age: 64 Year
  Sex: Male

DRUGS (1)
  1. VICODIN ES [Suspect]
     Dosage: 1 TAB BY MOUTH EVERY 8 HOURS
     Route: 048
     Dates: start: 20020101

REACTIONS (3)
  - DYSURIA [None]
  - PHARMACEUTICAL PRODUCT COMPLAINT [None]
  - URINARY RETENTION [None]
